FAERS Safety Report 11351067 (Version 1)
Quarter: 2015Q3

REPORT INFORMATION
  Report Type: Spontaneous
  Country: US (occurrence: US)
  Receive Date: 20150807
  Receipt Date: 20150807
  Transmission Date: 20151125
  Serious: No
  Sender: FDA-Public Use
  Company Number: US-JNJFOC-20150521281

PATIENT
  Age: 72 Year
  Sex: Female
  Weight: 58.97 kg

DRUGS (5)
  1. OTHER THERAPEUTIC PRODUCT [Concomitant]
     Active Substance: UNSPECIFIED INGREDIENT
     Dosage: 1- 2 MONTHS, A HANDFUL
     Route: 065
     Dates: start: 20140514
  2. NEUTROGENA T/GEL THERAPEUTIC [Concomitant]
     Active Substance: COAL TAR\PYRITHIONE ZINC\SALICYLIC ACID
     Indication: SKIN DISORDER
     Dosage: 1- 2 MONTHS, QUARTER TO HALF DOLLAR SIZE
     Route: 065
     Dates: start: 20140514
  3. WOMENS ROGAINE [Suspect]
     Active Substance: MINOXIDIL
     Indication: HAIR GROWTH ABNORMAL
     Route: 061
  4. PROZAC [Concomitant]
     Active Substance: FLUOXETINE HYDROCHLORIDE
     Indication: DEPRESSION
     Route: 065
  5. WOMENS ROGAINE [Suspect]
     Active Substance: MINOXIDIL
     Route: 061

REACTIONS (1)
  - Urticaria [Recovered/Resolved]
